FAERS Safety Report 9331200 (Version 4)
Quarter: 2014Q3

REPORT INFORMATION
  Report Type: Spontaneous
  Country: US (occurrence: US)
  Receive Date: 20130605
  Receipt Date: 20140807
  Transmission Date: 20150326
  Serious: Yes (Hospitalization, Other)
  Sender: FDA-Public Use
  Company Number: US-009507513-1306USA000496

PATIENT
  Sex: Female
  Weight: 61.22 kg

DRUGS (1)
  1. NUVARING [Suspect]
     Active Substance: ETHINYL ESTRADIOL\ETONOGESTREL
     Indication: CONTRACEPTION
     Dosage: UNK
     Route: 067
     Dates: start: 2007, end: 20090705

REACTIONS (12)
  - Hypoaesthesia [Unknown]
  - Atrial septal defect repair [Unknown]
  - Hypoaesthesia [Unknown]
  - Dizziness [Unknown]
  - Hyperplasia [Unknown]
  - Cerebrovascular accident [Unknown]
  - Transient ischaemic attack [Unknown]
  - Muscle spasms [Unknown]
  - Sensory disturbance [Unknown]
  - Concussion [Unknown]
  - Vertebral artery stenosis [Unknown]
  - Palpitations [Unknown]

NARRATIVE: CASE EVENT DATE: 20090703
